FAERS Safety Report 6057749-7 (Version None)
Quarter: 2009Q1

REPORT INFORMATION
  Report Type: 
  Country: None (occurrence: None)
  Receive Date: 20090129
  Receipt Date: 20090119
  Transmission Date: 20090719
  Serious: Yes (Other)
  Sender: FDA-Public Use
  Company Number: US-BAYER-200910189BCC

PATIENT
  Age: 90 Year
  Sex: Female
  Weight: 61 kg

DRUGS (5)
  1. ASPIRIN [Suspect]
     Indication: ISCHAEMIC HEART DISEASE PROPHYLAXIS
     Dosage: TOTAL DAILY DOSE: 81 MG  UNIT DOSE: 81 MG
     Route: 048
     Dates: start: 20090112
  2. CENTRUM [Concomitant]
  3. ESTER-C [Concomitant]
  4. LOTENSIN 20 (GENERIC) [Concomitant]
  5. BLOOD PRESSURE MEDICATION (NOS) [Concomitant]

REACTIONS (1)
  - HAEMATOCHEZIA [None]
